FAERS Safety Report 6243893-8 (Version None)
Quarter: 2009Q2

REPORT INFORMATION
  Report Type: 
  Country: None (occurrence: None)
  Receive Date: 20090623
  Receipt Date: 20090608
  Transmission Date: 20091009
  Serious: Yes (Death)
  Sender: FDA-Public Use
  Company Number: B0579526A

PATIENT
  Age: 59 Year
  Sex: Male

DRUGS (6)
  1. MELPHALAN (FORMULATION UNKNOWN) (GENERIC) (MELPHALAN) [Suspect]
     Indication: LEUKAEMIA PLASMACYTIC
     Dates: start: 20080101
  2. ACYCLOVIR [Concomitant]
  3. ITRACONAZOLE [Concomitant]
  4. IMMUNE GLOBULIN INTRAVENOUS (HUMAN) [Concomitant]
  5. PEGFILGRASTIM [Concomitant]
  6. AUTO STEM CELL INFUSION [Concomitant]

REACTIONS (16)
  - BLOOD CREATININE INCREASED [None]
  - BLOOD IMMUNOGLOBULIN G DECREASED [None]
  - CYTOMEGALOVIRUS CHORIORETINITIS [None]
  - CYTOMEGALOVIRUS INFECTION [None]
  - HYPERKALAEMIA [None]
  - INTERSTITIAL LUNG DISEASE [None]
  - MULTI-ORGAN FAILURE [None]
  - ORGANISING PNEUMONIA [None]
  - PNEUMONIA [None]
  - PYREXIA [None]
  - RESPIRATORY FAILURE [None]
  - RETINAL EXUDATES [None]
  - RETINAL HAEMORRHAGE [None]
  - STAPHYLOCOCCAL INFECTION [None]
  - TRANSPLANT FAILURE [None]
  - ULTRASOUND ABDOMEN ABNORMAL [None]
